FAERS Safety Report 10465096 (Version 3)
Quarter: 2014Q4

REPORT INFORMATION
  Report Type: Spontaneous
  Country: AR (occurrence: AR)
  Receive Date: 20140919
  Receipt Date: 20141009
  Transmission Date: 20150528
  Serious: Yes (Other)
  Sender: FDA-Public Use
  Company Number: CHPA2014AR010411

PATIENT
  Age: 81 Year
  Sex: Male

DRUGS (1)
  1. NICOTINELL [Suspect]
     Active Substance: NICOTINE
     Indication: SMOKING CESSATION THERAPY
     Dosage: 1 G, UNK, CURRENTLY CONSUMES 10 DF DAILY
     Dates: start: 201010

REACTIONS (2)
  - Drug dependence [Recovering/Resolving]
  - Nervousness [Recovered/Resolved]
